FAERS Safety Report 5998186-0 (Version None)
Quarter: 2008Q4

REPORT INFORMATION
  Report Type: 
  Country: None (occurrence: None)
  Receive Date: 20081213
  Receipt Date: 20080625
  Transmission Date: 20090506
  Serious: No
  Sender: FDA-Public Use
  Company Number: US-AMGEN-KDL290130

PATIENT
  Sex: Female

DRUGS (2)
  1. ENBREL [Suspect]
     Indication: PSORIASIS
     Route: 058
     Dates: start: 20080326
  2. ENBREL [Suspect]
     Indication: BEHCET'S SYNDROME

REACTIONS (2)
  - FATIGUE [None]
  - PAIN IN EXTREMITY [None]
